FAERS Safety Report 7983114-9 (Version None)
Quarter: 2011Q4

REPORT INFORMATION
  Report Type: 
  Country: None (occurrence: None)
  Receive Date: 20111215
  Receipt Date: 20111206
  Transmission Date: 20120403
  Serious: Yes (Death, Life-Threatening)
  Sender: FDA-Public Use
  Company Number: JP-AMGEN-JPNCT2011055923

PATIENT
  Age: 74 Year
  Sex: Male

DRUGS (13)
  1. OXALIPLATIN [Concomitant]
     Indication: COLORECTAL CANCER
     Route: 041
     Dates: start: 20110510
  2. LEVOLEUCOVORIN CALCIUM [Concomitant]
     Indication: COLORECTAL CANCER
     Dosage: UNK UNK, Q2WK
     Route: 041
     Dates: start: 20110510
  3. MAGMITT [Concomitant]
     Dosage: 1 UNK, TID
     Route: 048
     Dates: start: 20110423, end: 20110711
  4. SITAGLIPTIN PHOSPHATE [Concomitant]
     Dosage: 1 UNK, QD
     Route: 048
     Dates: start: 20110423, end: 20110711
  5. AMARYL [Concomitant]
     Dosage: 1 UNK, QD
     Route: 048
     Dates: start: 20110423, end: 20110711
  6. LASIX [Concomitant]
     Route: 048
     Dates: start: 20110423, end: 20110711
  7. PANITUMUMAB [Suspect]
     Indication: COLORECTAL CANCER
     Dosage: 360 MG, Q2WK
     Route: 041
     Dates: start: 20110510, end: 20110629
  8. FLUOROURACIL [Concomitant]
     Indication: COLORECTAL CANCER
     Route: 040
     Dates: start: 20110510
  9. MAGMITT [Concomitant]
  10. DIOVAN [Concomitant]
     Dosage: 1 UNK, QD
     Route: 048
     Dates: start: 20110423, end: 20110711
  11. FLUOROURACIL [Concomitant]
     Route: 041
     Dates: start: 20110510
  12. AZULENE-GLUTAMINE [Concomitant]
     Route: 048
     Dates: start: 20110423, end: 20110711
  13. GANATON [Concomitant]
     Dosage: 1 DF, TID
     Route: 048
     Dates: start: 20110423, end: 20110711

REACTIONS (2)
  - ENTEROCOLITIS [None]
  - COLORECTAL CANCER [None]
